FAERS Safety Report 7525494-4 (Version None)
Quarter: 2011Q2

REPORT INFORMATION
  Report Type: 
  Country: None (occurrence: None)
  Receive Date: 20110606
  Receipt Date: 20110531
  Transmission Date: 20111010
  Serious: Yes (Other)
  Sender: FDA-Public Use
  Company Number: US-ROCHE-780268

PATIENT
  Sex: Female

DRUGS (1)
  1. BONIVA [Suspect]
     Dosage: STRENGTH: 150 (UNITS NOT GIVEN)
     Route: 065
     Dates: start: 20050101, end: 20101201

REACTIONS (2)
  - ANKLE FRACTURE [None]
  - FALL [None]
